FAERS Safety Report 13376732 (Version 1)
Quarter: 2017Q1

REPORT INFORMATION
  Report Type: Spontaneous
  Country: US (occurrence: US)
  Receive Date: 20170327
  Receipt Date: 20170327
  Transmission Date: 20170429
  Serious: Yes (Life-Threatening, Other)
  Sender: FDA-Public Use
  Company Number: None

PATIENT
  Age: 65 Year
  Sex: Male
  Weight: 89.4 kg

DRUGS (5)
  1. CEFTAROLINE [Suspect]
     Active Substance: CEFTAROLINE
     Indication: LOCALISED INFECTION
     Dosage: ?          OTHER FREQUENCY:ONCE;?
     Route: 041
     Dates: start: 20161221, end: 20161221
  2. MIDAZOLAM [Concomitant]
     Active Substance: MIDAZOLAM HYDROCHLORIDE
  3. PROPOFOL. [Concomitant]
     Active Substance: PROPOFOL
  4. BUPIVACAINE. [Concomitant]
     Active Substance: BUPIVACAINE
  5. FENTANYL. [Concomitant]
     Active Substance: FENTANYL

REACTIONS (4)
  - Pulse absent [None]
  - Unresponsive to stimuli [None]
  - Pruritus [None]
  - Throat irritation [None]

NARRATIVE: CASE EVENT DATE: 20161221
